FAERS Safety Report 14978431 (Version 1)
Quarter: 2018Q2

REPORT INFORMATION
  Report Type: Report from Study
  Country: US (occurrence: US)
  Receive Date: 20180606
  Receipt Date: 20180606
  Transmission Date: 20180711
  Serious: Yes (Other)
  Sender: FDA-Public Use
  Company Number: US-NAPPMUNDI-USA-2018-0143811

PATIENT
  Sex: Female

DRUGS (3)
  1. OXYCODONE HYDROCHLORIDE. [Suspect]
     Active Substance: OXYCODONE HYDROCHLORIDE
     Indication: NEURALGIA
  2. OXYCODONE HYDROCHLORIDE. [Suspect]
     Active Substance: OXYCODONE HYDROCHLORIDE
     Indication: BACK PAIN
     Dosage: 1 TABLET, Q8H
     Route: 048
  3. OXYCODONE [Concomitant]
     Active Substance: OXYCODONE
     Indication: NEURALGIA
     Route: 048

REACTIONS (5)
  - Pneumonia [Not Recovered/Not Resolved]
  - Chronic obstructive pulmonary disease [Not Recovered/Not Resolved]
  - Breast cancer [Not Recovered/Not Resolved]
  - Spinal operation [Unknown]
  - Off label use [Unknown]
